FAERS Safety Report 8230572-0 (Version None)
Quarter: 2012Q1

REPORT INFORMATION
  Report Type: 
  Country: None (occurrence: None)
  Receive Date: 20120323
  Receipt Date: 20120316
  Transmission Date: 20120608
  Serious: Yes (Other)
  Sender: FDA-Public Use
  Company Number: TW-JNJFOC-20120310025

PATIENT
  Age: 56 Year
  Sex: Male

DRUGS (6)
  1. ULTRACET [Suspect]
     Indication: INTERVERTEBRAL DISC DEGENERATION
     Dosage: 1 DF TWICE DAILY
     Route: 048
     Dates: start: 20110321
  2. MAGNESIUM OXIDE [Concomitant]
     Indication: PAIN
     Dosage: 1 DOSE TWICE DAILY
     Dates: start: 20110321
  3. ULTRACET [Suspect]
     Indication: PAIN
     Dosage: 1 DF TWICE DAILY
     Route: 048
     Dates: start: 20110321
  4. ALINAMIN F [Concomitant]
     Indication: PAIN
     Dosage: 1 DOSE TWICE DAILY
     Route: 058
     Dates: start: 20110321
  5. ALINAMIN F [Concomitant]
     Indication: INTERVERTEBRAL DISC DEGENERATION
     Dosage: 1 DOSE TWICE DAILY
     Route: 058
     Dates: start: 20110321
  6. MAGNESIUM OXIDE [Concomitant]
     Indication: INTERVERTEBRAL DISC DEGENERATION
     Dosage: 1 DOSE TWICE DAILY
     Dates: start: 20110321

REACTIONS (1)
  - DRUG ERUPTION [None]
